FAERS Safety Report 14951427 (Version 1)
Quarter: 2018Q2

REPORT INFORMATION
  Report Type: Spontaneous
  Country: CN (occurrence: CN)
  Receive Date: 20180530
  Receipt Date: 20180530
  Transmission Date: 20180711
  Serious: Yes (Other)
  Sender: FDA-Public Use
  Company Number: CN-PFIZER INC-2018219481

PATIENT
  Age: 81 Year
  Sex: Male
  Weight: 50 kg

DRUGS (1)
  1. CEFOBID [Suspect]
     Active Substance: CEFOPERAZONE
     Indication: PNEUMONIA ASPIRATION
     Dosage: 2 G, 2X/DAY
     Route: 041
     Dates: start: 20180326, end: 20180330

REACTIONS (2)
  - Stevens-Johnson syndrome [Recovered/Resolved]
  - Erythema multiforme [Recovered/Resolved]

NARRATIVE: CASE EVENT DATE: 20180330
